FAERS Safety Report 8990142 (Version 1)
Quarter: 2012Q4

REPORT INFORMATION
  Report Type: 
  Country: US (occurrence: US)
  Receive Date: 20121228
  Receipt Date: 20121228
  Transmission Date: 20130627
  Serious: Yes (Other)
  Sender: FDA-Public Use
  Company Number: US-PFIZER INC-2012328402

PATIENT
  Sex: Female

DRUGS (2)
  1. PREPARATION H HEMORRHOIDAL SUPPOSITORIES [Suspect]
     Indication: HEMORRHOIDS
     Dosage: UNK
     Dates: start: 201212
  2. PREPARATION H HEMORRHOIDAL SUPPOSITORIES [Suspect]
     Indication: RECTAL DISORDER

REACTIONS (1)
  - Haemorrhage [Unknown]
